FAERS Safety Report 25083484 (Version 2)
Quarter: 2025Q4

REPORT INFORMATION
  Report Type: Spontaneous
  Country: US (occurrence: US)
  Receive Date: 20250317
  Receipt Date: 20251103
  Transmission Date: 20260117
  Serious: No
  Sender: SANOFI AVENTIS
  Company Number: US-SA-2025SA075643

PATIENT
  Age: 78 Year
  Sex: Female
  Weight: 96.82 kg

DRUGS (1)
  1. DUPIXENT [Suspect]
     Active Substance: DUPILUMAB
     Indication: Dermatitis atopic
     Dosage: 300 MG, QOW
     Route: 058
     Dates: start: 20250208

REACTIONS (6)
  - Injection site warmth [Recovered/Resolved]
  - Injection site erythema [Recovered/Resolved]
  - Dermatitis atopic [Recovering/Resolving]
  - Pruritus [Recovering/Resolving]
  - Rash erythematous [Recovering/Resolving]
  - Injection site pain [Recovered/Resolved]

NARRATIVE: CASE EVENT DATE: 20250201
